FAERS Safety Report 4898871-8 (Version None)
Quarter: 2006Q1

REPORT INFORMATION
  Report Type: 
  Country: None (occurrence: None)
  Receive Date: 20060104
  Receipt Date: 20050926
  Transmission Date: 20060701
  Serious: Yes (Hospitalization)
  Sender: FDA-Public Use
  Company Number: A03200503067

PATIENT
  Age: 53 Year
  Sex: Male
  Weight: 107.5025 kg

DRUGS (3)
  1. ELOXATIN [Suspect]
     Indication: COLON CANCER STAGE IV
     Dosage: 194 MG Q2W - INTRAVENOUS NOS
     Route: 042
     Dates: start: 20050829, end: 20050829
  2. FLUOROURACIL [Concomitant]
  3. BEVACIZUMAB [Concomitant]

REACTIONS (4)
  - ABDOMINAL PAIN [None]
  - HYPERSENSITIVITY [None]
  - HYPOTENSION [None]
  - URTICARIA [None]
